FAERS Safety Report 23205199 (Version 1)
Quarter: 2023Q4

REPORT INFORMATION
  Report Type: Spontaneous
  Country: US (occurrence: None)
  Receive Date: 20231120
  Receipt Date: 20231120
  Transmission Date: 20240110
  Serious: Yes (Hospitalization)
  Sender: FDA-Public Use
  Company Number: None

PATIENT
  Age: 63 Year
  Sex: Female

DRUGS (2)
  1. BRAFTOVI [Suspect]
     Active Substance: ENCORAFENIB
     Route: 048
  2. MEKTOVI [Suspect]
     Active Substance: BINIMETINIB

REACTIONS (3)
  - Orthostatic hypotension [None]
  - Tunnel vision [None]
  - Visual impairment [None]
